FAERS Safety Report 23719950 (Version 2)
Quarter: 2024Q2

REPORT INFORMATION
  Report Type: Spontaneous
  Country: IT (occurrence: IT)
  Receive Date: 20240408
  Receipt Date: 20240410
  Transmission Date: 20240716
  Serious: Yes (Life-Threatening, Hospitalization)
  Sender: FDA-Public Use
  Company Number: None

PATIENT
  Age: 48 Year
  Sex: Male

DRUGS (1)
  1. VOLTAREN [Suspect]
     Active Substance: DICLOFENAC SODIUM
     Indication: Back pain
     Dosage: UNK
     Route: 030
     Dates: start: 20240207, end: 20240207

REACTIONS (5)
  - Loss of consciousness [Recovered/Resolved]
  - Swelling of eyelid [Recovered/Resolved]
  - C-reactive protein abnormal [Recovered/Resolved]
  - Urinary retention [Recovered/Resolved]
  - Leukocytosis [Recovered/Resolved]

NARRATIVE: CASE EVENT DATE: 20240207
